FAERS Safety Report 10062619 (Version 4)
Quarter: 2014Q2

REPORT INFORMATION
  Report Type: Report from Study
  Country: DE (occurrence: DE)
  Receive Date: 20140407
  Receipt Date: 20140515
  Transmission Date: 20141212
  Serious: Yes (Hospitalization)
  Sender: FDA-Public Use
  Company Number: DE-ONYX-2014-0697

PATIENT
  Age: 63 Year
  Sex: Female

DRUGS (20)
  1. CARFILZOMIB [Suspect]
     Indication: PLASMA CELL MYELOMA
     Route: 042
     Dates: start: 20131217, end: 20131218
  2. CARFILZOMIB [Suspect]
     Route: 042
     Dates: start: 20131223, end: 20131230
  3. CARFILZOMIB [Suspect]
     Route: 042
     Dates: start: 20140114, end: 20140312
  4. CARFILZOMIB [Suspect]
     Route: 042
     Dates: start: 20140408
  5. DEXAMETHASONE [Suspect]
     Indication: PLASMA CELL MYELOMA
     Route: 048
     Dates: start: 20131217, end: 20140318
  6. DEXAMETHASONE [Suspect]
     Route: 048
     Dates: start: 20140408
  7. ASS [Concomitant]
     Indication: PROPHYLAXIS
     Route: 048
     Dates: start: 1998
  8. L-THYROXIN [Concomitant]
     Indication: HYPOTHYROIDISM
     Route: 048
     Dates: start: 2002
  9. SYMBICORT TURBOHALER [Concomitant]
     Indication: ASTHMA
     Route: 055
     Dates: start: 2002
  10. CITALOPRAM [Concomitant]
     Indication: DEPRESSION
     Route: 048
     Dates: start: 2004
  11. HYDROMORPHON [Concomitant]
     Indication: BACK PAIN
     Route: 048
     Dates: start: 2005, end: 20140407
  12. MOVICOL [Concomitant]
     Indication: CONSTIPATION
     Route: 048
     Dates: start: 2005
  13. IDEOS (CALCIUM 500 MG, 400IU VITAMINE D3) [Concomitant]
     Indication: OSTEOPOROSIS
     Route: 048
     Dates: start: 2010
  14. SIMVASTATIN [Concomitant]
     Indication: HYPERCHOLESTEROLAEMIA
     Route: 048
     Dates: start: 2013
  15. ACICLOVIR [Concomitant]
     Indication: ANTIVIRAL PROPHYLAXIS
     Route: 048
     Dates: start: 20131217
  16. PANTOPRAZOL [Concomitant]
     Indication: GASTRIC DISORDER
     Route: 048
     Dates: start: 20131217
  17. ZOMETA [Concomitant]
     Indication: PROPHYLAXIS
     Route: 042
     Dates: start: 20140304
  18. CLEXANE [Concomitant]
     Indication: THROMBOPHLEBITIS
     Route: 058
     Dates: start: 20140317, end: 20140324
  19. FUROSEMID [Concomitant]
     Indication: OEDEMA PERIPHERAL
     Route: 048
     Dates: start: 20140317, end: 20140407
  20. PENHEXAL 1.5 MEGA [Concomitant]
     Indication: ERYSIPELAS
     Route: 048
     Dates: start: 20140317, end: 20140327

REACTIONS (1)
  - Erysipelas [Recovering/Resolving]
